FAERS Safety Report 4752885-7 (Version None)
Quarter: 2005Q3

REPORT INFORMATION
  Report Type: 
  Country: None (occurrence: None)
  Receive Date: 20050823
  Receipt Date: 20050210
  Transmission Date: 20060218
  Serious: Yes (Hospitalization)
  Sender: FDA-Public Use
  Company Number: 26223

PATIENT
  Sex: Male

DRUGS (1)
  1. ALDARA [Suspect]
     Indication: ACTINIC KERATOSIS
     Dosage: UNSPEC., 3 IN 1 WEEK(S), TOPICAL
     Route: 061
     Dates: start: 20040101, end: 20040101

REACTIONS (3)
  - PUSTULAR PSORIASIS [None]
  - RASH ERYTHEMATOUS [None]
  - SCAB [None]
